FAERS Safety Report 7717793-8 (Version None)
Quarter: 2011Q3

REPORT INFORMATION
  Report Type: 
  Country: None (occurrence: None)
  Receive Date: 20110830
  Receipt Date: 20110720
  Transmission Date: 20111222
  Serious: Yes (Death, Other)
  Sender: FDA-Public Use
  Company Number: GB-AMGEN-GBRCT2011037314

PATIENT
  Age: 61 Year
  Sex: Male

DRUGS (3)
  1. CISPLATIN [Concomitant]
     Dosage: 190 MG, UNK
     Dates: start: 20101020
  2. IFOSFAMIDE [Concomitant]
     Dosage: 9500 MG, UNK
     Dates: start: 20101021
  3. NEULASTA [Suspect]
     Indication: CHEMOTHERAPY

REACTIONS (1)
  - RENAL IMPAIRMENT [None]
